FAERS Safety Report 9243014 (Version 1)
Quarter: 2013Q2

REPORT INFORMATION
  Report Type: Spontaneous
  Country: US (occurrence: US)
  Receive Date: 20130419
  Receipt Date: 20130419
  Transmission Date: 20140414
  Serious: Yes (Death, Other)
  Sender: FDA-Public Use
  Company Number: PHHY2013US038434

PATIENT
  Sex: Female

DRUGS (6)
  1. CARBOPLATIN [Suspect]
     Indication: OVARIAN CANCER
     Dosage: UNK UKN, UNK
  2. PACLITAXEL [Suspect]
     Indication: OVARIAN CANCER
  3. CISPLATIN [Suspect]
     Indication: OVARIAN CANCER
     Route: 033
  4. PEGYLATED LIPOSOMAL DOXORUBICIN HYDROCHLORIDE [Suspect]
     Indication: OVARIAN CANCER
     Dosage: 2000 MG/M2, UNK
  5. BEVACIZUMAB [Suspect]
     Indication: OVARIAN CANCER
  6. TOPOTECAN [Concomitant]
     Indication: OVARIAN CANCER

REACTIONS (5)
  - Ovarian cancer [Fatal]
  - Malignant neoplasm progression [Fatal]
  - Renal failure chronic [Unknown]
  - Hypertension [Unknown]
  - Ovarian cancer recurrent [Unknown]
